FAERS Safety Report 11050174 (Version 6)
Quarter: 2016Q2

REPORT INFORMATION
  Report Type: Report from Study
  Country: FR (occurrence: FR)
  Receive Date: 20150420
  Receipt Date: 20160401
  Transmission Date: 20160815
  Serious: Yes (Hospitalization, Other)
  Sender: FDA-Public Use
  Company Number: FR-BRISTOL-MYERS SQUIBB COMPANY-BMS-2015-024013

PATIENT
  Age: 64 Year
  Sex: Male
  Weight: 54 kg

DRUGS (1)
  1. NIVOLUMAB [Suspect]
     Active Substance: NIVOLUMAB
     Indication: NON-SMALL CELL LUNG CANCER
     Dosage: 3 MG/KG, UNK
     Route: 042
     Dates: start: 20150302

REACTIONS (10)
  - Enterococcal sepsis [Recovered/Resolved]
  - Pyrexia [Recovered/Resolved]
  - Asthenia [Unknown]
  - Acute pulmonary oedema [Recovered/Resolved]
  - Diarrhoea [Recovered/Resolved with Sequelae]
  - Cardiogenic shock [Recovered/Resolved]
  - Infective thrombosis [Unknown]
  - Haemoglobin abnormal [Unknown]
  - Hypotension [Recovered/Resolved with Sequelae]
  - Acute kidney injury [Unknown]

NARRATIVE: CASE EVENT DATE: 20150402
